FAERS Safety Report 21018588 (Version 1)
Quarter: 2022Q2

REPORT INFORMATION
  Report Type: Spontaneous
  Country: US (occurrence: None)
  Receive Date: 20220628
  Receipt Date: 20220628
  Transmission Date: 20220721
  Serious: Yes (Hospitalization)
  Sender: FDA-Public Use
  Company Number: None

PATIENT
  Sex: Male

DRUGS (11)
  1. MYCOPHENOLIC ACID [Suspect]
     Active Substance: MYCOPHENOLIC ACID
     Indication: Pancreas transplant
     Route: 048
     Dates: start: 20211228
  2. ALPRAZOLAM [Concomitant]
  3. DEXTROAMPHET SACCHARAT, AMPHET ASPARTATE, DEXTROAMPHET SULFATE AND AMP [Concomitant]
     Active Substance: AMPHETAMINE ASPARTATE\AMPHETAMINE SULFATE\DEXTROAMPHETAMINE SACCHARATE\DEXTROAMPHETAMINE SULFATE
  4. CARVEDILOL [Concomitant]
  5. DEXAMETH PHO [Concomitant]
  6. HYDROCO/APAP [Concomitant]
  7. KENALOG [Concomitant]
     Active Substance: TRIAMCINOLONE ACETONIDE
  8. MYCOPHENOLATE MOFETIL [Concomitant]
     Active Substance: MYCOPHENOLATE MOFETIL
  9. QUETIAPINE [Concomitant]
     Active Substance: QUETIAPINE
  10. TACROLIMUS [Concomitant]
     Active Substance: TACROLIMUS
  11. TRINTELLIX [Concomitant]

REACTIONS (2)
  - Pneumonia [None]
  - Malaise [None]
